FAERS Safety Report 21075462 (Version 1)
Quarter: 2022Q3

REPORT INFORMATION
  Report Type: Spontaneous
  Country: US (occurrence: None)
  Receive Date: 20220713
  Receipt Date: 20220713
  Transmission Date: 20221026
  Serious: Yes (Death)
  Sender: FDA-Public Use
  Company Number: US-ROCHE-3136740

PATIENT
  Sex: Female

DRUGS (1)
  1. RITUXAN [Suspect]
     Active Substance: RITUXIMAB
     Indication: Lymphoma
     Dosage: 10 MG/ML?INFUSE 340 MG INTRAVENOUSLY ON DAY 1 AND  340 MG INTRAVENOUSLY ON DAY 2, EVERY WEEK
     Route: 041
     Dates: start: 201808

REACTIONS (1)
  - Death [Fatal]
